FAERS Safety Report 8546483-7 (Version None)
Quarter: 2012Q3

REPORT INFORMATION
  Report Type: 
  Country: None (occurrence: None)
  Receive Date: 20120727
  Receipt Date: 20120713
  Transmission Date: 20120928
  Serious: Yes (Hospitalization)
  Sender: FDA-Public Use
  Company Number: GB-WATSON-2012-12491

PATIENT
  Age: 78 Year
  Sex: Female

DRUGS (1)
  1. IBANDRONATE SODIUM [Suspect]
     Indication: OSTEOPOROSIS
     Dosage: 3 MG, UNKNOWN
     Route: 042
     Dates: end: 20120201

REACTIONS (2)
  - JOINT SWELLING [None]
  - ATRIAL FIBRILLATION [None]
